FAERS Safety Report 11452519 (Version 2)
Quarter: 2017Q3

REPORT INFORMATION
  Report Type: Spontaneous
  Country: US (occurrence: US)
  Receive Date: 20150903
  Receipt Date: 20170921
  Transmission Date: 20171127
  Serious: Yes (Hospitalization, Other)
  Sender: FDA-Public Use
  Company Number: US-009507513-1509USA001269

PATIENT
  Sex: Female

DRUGS (4)
  1. FOSAMAX [Suspect]
     Active Substance: ALENDRONATE SODIUM
     Indication: OSTEOPOROSIS
     Dosage: 10 MG, UNKNOWN
     Route: 048
     Dates: start: 199909, end: 200108
  2. ALENDRONATE SODIUM. [Suspect]
     Active Substance: ALENDRONATE SODIUM
     Indication: OSTEOPOROSIS
     Dosage: 70 MG, UNK
     Route: 048
     Dates: start: 200811, end: 20130925
  3. FOSAMAX [Suspect]
     Active Substance: ALENDRONATE SODIUM
     Dosage: 35 MG, UNK
     Route: 048
     Dates: start: 20010808, end: 200209
  4. FOSAMAX [Suspect]
     Active Substance: ALENDRONATE SODIUM
     Dosage: 70 MG, QW
     Route: 048
     Dates: start: 20021026

REACTIONS (12)
  - Femur fracture [Unknown]
  - Neuropathy peripheral [Unknown]
  - Polyarteritis nodosa [Unknown]
  - Spinal disorder [Unknown]
  - Carpal tunnel syndrome [Unknown]
  - Hand fracture [Unknown]
  - Arthritis [Unknown]
  - Kyphosis [Unknown]
  - Femur fracture [Unknown]
  - Gastrooesophageal reflux disease [Unknown]
  - Rib fracture [Unknown]
  - Back disorder [Unknown]

NARRATIVE: CASE EVENT DATE: 20130925
